FAERS Safety Report 20070279 (Version 1)
Quarter: 2021Q4

REPORT INFORMATION
  Report Type: Spontaneous
  Country: US (occurrence: None)
  Receive Date: 20211112
  Receipt Date: 20211112
  Transmission Date: 20220303
  Serious: Yes (Hospitalization)
  Sender: FDA-Public Use
  Company Number: None

PATIENT
  Sex: Male

DRUGS (10)
  1. PYRIMETHAMINE [Suspect]
     Active Substance: PYRIMETHAMINE
     Indication: Toxoplasmosis
     Dosage: OTHER FREQUENCY : Q24HR;?
     Route: 048
     Dates: start: 20211013
  2. CFPODOXIME [Concomitant]
  3. ERYTHROMYCIN OIN [Concomitant]
  4. NAPROXEN [Concomitant]
     Active Substance: NAPROXEN
  5. LEVOFLOXACIN [Concomitant]
     Active Substance: LEVOFLOXACIN
  6. METRONIDAZOLE [Concomitant]
     Active Substance: METRONIDAZOLE
  7. SUMATRIPTAN [Concomitant]
     Active Substance: SUMATRIPTAN
  8. NEO/POLY/DEX OP [Concomitant]
  9. POLYMYXIN B/TRIMETHP [Concomitant]
  10. VALACYCLOVIR [Concomitant]
     Active Substance: VALACYCLOVIR HYDROCHLORIDE

REACTIONS (3)
  - Dry mouth [None]
  - Decreased appetite [None]
  - Hypersensitivity [None]
